FAERS Safety Report 5526324-2 (Version None)
Quarter: 2007Q4

REPORT INFORMATION
  Report Type: 
  Country: None (occurrence: None)
  Receive Date: 20071123
  Receipt Date: 20061101
  Transmission Date: 20080405
  Serious: Yes (Hospitalization)
  Sender: FDA-Public Use
  Company Number: US-JNJFOC-20061100700

PATIENT
  Sex: Female

DRUGS (1)
  1. LEVAQUIN [Suspect]
     Indication: URINARY TRACT INFECTION
     Dosage: INTRAVENOUS
     Route: 042
     Dates: start: 20061001, end: 20061001

REACTIONS (2)
  - ARTHRALGIA [None]
  - GAIT DISTURBANCE [None]
